FAERS Safety Report 8605480-3 (Version None)
Quarter: 2012Q3

REPORT INFORMATION
  Report Type: 
  Country: None (occurrence: None)
  Receive Date: 20120820
  Receipt Date: 20120813
  Transmission Date: 20120928
  Serious: Yes (Death)
  Sender: FDA-Public Use
  Company Number: US-CUBIST-2012S1000671

PATIENT

DRUGS (1)
  1. CUBICIN [Suspect]
     Indication: OSTEOMYELITIS

REACTIONS (1)
  - DEATH [None]
